FAERS Safety Report 14787920 (Version 1)
Quarter: 2018Q2

REPORT INFORMATION
  Report Type: Spontaneous
  Country: US (occurrence: US)
  Receive Date: 20180422
  Receipt Date: 20180422
  Transmission Date: 20180711
  Serious: No
  Sender: FDA-Public Use
  Company Number: US-JNJFOC-20180404609

PATIENT
  Sex: Female

DRUGS (2)
  1. ZYRTEC [Suspect]
     Active Substance: CETIRIZINE HYDROCHLORIDE
     Indication: PRODUCT USED FOR UNKNOWN INDICATION
     Route: 065
  2. ZYRTEC [Suspect]
     Active Substance: CETIRIZINE HYDROCHLORIDE
     Route: 065

REACTIONS (8)
  - Rhinorrhoea [Unknown]
  - Pain [Unknown]
  - Epistaxis [Unknown]
  - Nasal congestion [Unknown]
  - Throat irritation [Unknown]
  - Ear discomfort [Unknown]
  - Condition aggravated [Unknown]
  - Malaise [Unknown]
